FAERS Safety Report 4999612-6 (Version None)
Quarter: 2006Q2

REPORT INFORMATION
  Report Type: 
  Country: None (occurrence: None)
  Receive Date: 20060511
  Receipt Date: 20050921
  Transmission Date: 20061013
  Serious: Yes (Hospitalization, Other)
  Sender: FDA-Public Use
  Company Number: US-MERCK-0509USA03184

PATIENT
  Age: 58 Year
  Sex: Male

DRUGS (3)
  1. VIOXX [Suspect]
     Indication: PAIN
     Route: 048
     Dates: start: 20010906, end: 20040501
  2. VIOXX [Suspect]
     Indication: POLYMYALGIA
     Route: 048
     Dates: start: 20010906, end: 20040501
  3. ASPIRIN [Concomitant]
     Route: 065

REACTIONS (8)
  - BRONCHITIS [None]
  - CEREBROVASCULAR ACCIDENT [None]
  - DEPRESSION [None]
  - FATIGUE [None]
  - INSOMNIA [None]
  - MYOCARDIAL INFARCTION [None]
  - POLYMYALGIA RHEUMATICA [None]
  - THROMBOSIS [None]
